FAERS Safety Report 7304202-6 (Version None)
Quarter: 2011Q1

REPORT INFORMATION
  Report Type: 
  Country: None (occurrence: None)
  Receive Date: 20110221
  Receipt Date: 20110204
  Transmission Date: 20110831
  Serious: Yes (Hospitalization, Other)
  Sender: FDA-Public Use
  Company Number: US-BAYER-200942579NA

PATIENT
  Sex: Female
  Weight: 59.091 kg

DRUGS (9)
  1. YAZ [Suspect]
     Indication: ORAL CONTRACEPTION
     Route: 048
     Dates: start: 20071001, end: 20081206
  2. YAZ [Suspect]
     Indication: ACNE
  3. YASMIN [Suspect]
  4. COUMADIN [Concomitant]
     Dosage: 5 MG (DAILY DOSE), ,
  5. UNCODEABLE ^UNCLASSIFIABLE^ [Concomitant]
     Dosage: AS NEEDED
  6. PEPCID [Concomitant]
  7. PREDNISONE [Concomitant]
  8. CEFTIN [Concomitant]
  9. PREDNISONE [Concomitant]

REACTIONS (7)
  - DYSPNOEA [None]
  - CHEST DISCOMFORT [None]
  - PULMONARY EMBOLISM [None]
  - PLEURITIC PAIN [None]
  - RALES [None]
  - PLEURISY [None]
  - PALPITATIONS [None]
